FAERS Safety Report 13095857 (Version 1)
Quarter: 2017Q1

REPORT INFORMATION
  Report Type: Spontaneous
  Country: GB (occurrence: GB)
  Receive Date: 20170109
  Receipt Date: 20170109
  Transmission Date: 20170428
  Serious: Yes (Life-Threatening, Hospitalization)
  Sender: FDA-Public Use
  Company Number: GB-ORION CORPORATION ORION PHARMA-TREX2017-0009

PATIENT
  Age: 76 Year
  Sex: Male

DRUGS (1)
  1. METHOTREXATE. [Suspect]
     Active Substance: METHOTREXATE
     Indication: BLADDER TRANSITIONAL CELL CARCINOMA RECURRENT
     Route: 048

REACTIONS (6)
  - Cytopenia [Recovered/Resolved]
  - Septic shock [Unknown]
  - Melaena [Unknown]
  - Bone marrow failure [Unknown]
  - Stomatitis [Unknown]
  - Candida infection [Unknown]
